FAERS Safety Report 25119501 (Version 1)
Quarter: 2025Q1

REPORT INFORMATION
  Report Type: Report from Study
  Country: US (occurrence: US)
  Receive Date: 20250325
  Receipt Date: 20250325
  Transmission Date: 20250409
  Serious: Yes (Hospitalization)
  Sender: ALNYLAM PHARMACEUTICALS
  Company Number: US-ALNYLAM PHARMACEUTICALS, INC.-ALN-2025-001719

PATIENT

DRUGS (1)
  1. AMVUTTRA [Suspect]
     Active Substance: VUTRISIRAN
     Indication: Hereditary neuropathic amyloidosis
     Route: 065
     Dates: start: 20250224, end: 20250224

REACTIONS (5)
  - Cardiac dysfunction [Unknown]
  - Unevaluable event [Unknown]
  - Eye pain [Unknown]
  - Abdominal distension [Unknown]
  - Lymphorrhoea [Recovered/Resolved]
